FAERS Safety Report 5724929-7 (Version None)
Quarter: 2008Q2

REPORT INFORMATION
  Report Type: 
  Country: None (occurrence: None)
  Receive Date: 20080430
  Receipt Date: 20080430
  Transmission Date: 20081010
  Serious: Yes (Other)
  Sender: FDA-Public Use
  Company Number: None

PATIENT
  Age: 45 Year
  Sex: Female
  Weight: 88.4514 kg

DRUGS (1)
  1. PROAIR HFA [Suspect]
     Indication: ASTHMA
     Dosage: 108MCG 2PUFFS /4 HRS
     Dates: start: 20070702, end: 20071003

REACTIONS (4)
  - ARTHRALGIA [None]
  - DYSPNOEA [None]
  - SWELLING [None]
  - VERTIGO [None]
